FAERS Safety Report 15288456 (Version 4)
Quarter: 2024Q1

REPORT INFORMATION
  Report Type: Spontaneous
  Country: IT (occurrence: None)
  Receive Date: 20180817
  Receipt Date: 20240312
  Transmission Date: 20240409
  Serious: Yes (Hospitalization)
  Sender: FDA-Public Use
  Company Number: None

PATIENT
  Age: 42 Year
  Sex: Male

DRUGS (5)
  1. STALEVO [Suspect]
     Active Substance: CARBIDOPA\ENTACAPONE\LEVODOPA
     Indication: Parkinson^s disease
     Dosage: ABUSE/MISUSE
     Dates: start: 20120101, end: 20180919
  2. BENSERAZIDE HYDROCHLORIDE\LEVODOPA [Suspect]
     Active Substance: BENSERAZIDE HYDROCHLORIDE\LEVODOPA
     Indication: Parkinson^s disease
     Dosage: ABUSE/MISUSE
     Dates: start: 20120101, end: 20180919
  3. BENSERAZIDE HYDROCHLORIDE\LEVODOPA [Suspect]
     Active Substance: BENSERAZIDE HYDROCHLORIDE\LEVODOPA
     Dosage: DOSE REDUCED
  4. AZILECT [Suspect]
     Active Substance: RASAGILINE MESYLATE
     Indication: Parkinson^s disease
     Dosage: STRENGTH: 1 MG; 1 DOSAGE FORM; ?ABUSE/MISUSE
     Dates: start: 20080101, end: 20180919
  5. PREGABALIN [Concomitant]
     Active Substance: PREGABALIN

REACTIONS (5)
  - Drug abuse [Recovering/Resolving]
  - Dopamine dysregulation syndrome [Recovering/Resolving]
  - Psychotic disorder [Recovering/Resolving]
  - Gambling disorder [Recovering/Resolving]
  - Delusional disorder, persecutory type [Recovering/Resolving]

NARRATIVE: CASE EVENT DATE: 20180221
